FAERS Safety Report 14479482 (Version 1)
Quarter: 2018Q1

REPORT INFORMATION
  Report Type: Spontaneous
  Country: PL (occurrence: PL)
  Receive Date: 20180202
  Receipt Date: 20180202
  Transmission Date: 20180509
  Serious: Yes (Other)
  Sender: FDA-Public Use
  Company Number: PL-CIPLA LTD.-2018PL03248

PATIENT

DRUGS (4)
  1. CAPECITABINE. [Suspect]
     Active Substance: CAPECITABINE
     Indication: SMALL INTESTINE ADENOCARCINOMA
     Dosage: UNK, 6 CYCLICAL
     Route: 065
  2. LEUCOVORIN. [Suspect]
     Active Substance: LEUCOVORIN
     Indication: SMALL INTESTINE ADENOCARCINOMA
     Dosage: UNK, 6 CYCLICAL
     Route: 065
  3. OXALIPLATIN. [Suspect]
     Active Substance: OXALIPLATIN
     Indication: SMALL INTESTINE ADENOCARCINOMA
     Dosage: UNK, 6 CYCLICAL
     Route: 065
  4. FLUOROURACIL. [Suspect]
     Active Substance: FLUOROURACIL
     Indication: SMALL INTESTINE ADENOCARCINOMA
     Dosage: UNK, 6 CYCLICAL
     Route: 065

REACTIONS (5)
  - Metastases to gastrointestinal tract [Unknown]
  - Peripheral sensorimotor neuropathy [Not Recovered/Not Resolved]
  - Metastases to ovary [Unknown]
  - Metastases to uterus [Unknown]
  - Metastases to rectum [Unknown]
